FAERS Safety Report 5921141-3 (Version None)
Quarter: 2008Q4

REPORT INFORMATION
  Report Type: 
  Country: None (occurrence: None)
  Receive Date: 20081016
  Receipt Date: 20081008
  Transmission Date: 20090506
  Serious: Yes (Other)
  Sender: FDA-Public Use
  Company Number: BR-SANOFI-SYNTHELABO-A01200812450

PATIENT
  Sex: Female

DRUGS (1)
  1. MYSLEE [Suspect]
     Indication: DRUG USE FOR UNKNOWN INDICATION
     Route: 048
     Dates: start: 20081004, end: 20081004

REACTIONS (6)
  - AMNESIA [None]
  - FALL [None]
  - HAEMATOMA [None]
  - HEAD INJURY [None]
  - IRRITABILITY [None]
  - NERVOUSNESS [None]
